FAERS Safety Report 9603562 (Version 1)
Quarter: 2013Q4

REPORT INFORMATION
  Report Type: Spontaneous
  Country: US (occurrence: US)
  Receive Date: 20131007
  Receipt Date: 20131007
  Transmission Date: 20140711
  Serious: No
  Sender: FDA-Public Use
  Company Number: US-PFIZER INC-2013284553

PATIENT
  Age: 51 Year
  Sex: Female

DRUGS (3)
  1. DILANTIN-125 [Suspect]
     Dosage: UNK
  2. FELBATOL [Suspect]
     Dosage: UNK
  3. LACOSAMIDE [Suspect]
     Dosage: UNK

REACTIONS (1)
  - Drug hypersensitivity [Unknown]
